FAERS Safety Report 9036774 (Version 1)
Quarter: 2013Q1

REPORT INFORMATION
  Report Type: Spontaneous
  Country: DK (occurrence: None)
  Receive Date: 20130114
  Receipt Date: 20130114
  Transmission Date: 20140127
  Serious: Yes (Hospitalization)
  Sender: FDA-Public Use
  Company Number: 2013MA000338

PATIENT
  Age: 70 Year
  Sex: Female

DRUGS (7)
  1. LOSARTAN POTASSIUM [Suspect]
     Indication: HYPERTENSION
     Route: 048
     Dates: start: 20000101, end: 20121127
  2. SPIRONOLACTONE [Suspect]
     Indication: HYPERTENSION
     Route: 048
     Dates: start: 20000101, end: 20121127
  3. FUROSEMIDE (FUROSEMIDE) [Suspect]
     Indication: HYPERTENSION
     Route: 048
     Dates: start: 20000101, end: 20121127
  4. CARDIOASPIRIN [Concomitant]
  5. ALLOPURINOL [Concomitant]
  6. SIMVASTATIN [Concomitant]
  7. PREGABALIN [Concomitant]

REACTIONS (5)
  - Bradycardia [None]
  - Electrolyte imbalance [None]
  - Nodal rhythm [None]
  - Electrocardiogram T wave peaked [None]
  - Blood potassium increased [None]
